FAERS Safety Report 9825088 (Version 1)
Quarter: 2014Q1

REPORT INFORMATION
  Report Type: Spontaneous
  Country: US (occurrence: None)
  Receive Date: 20140115
  Receipt Date: 20140115
  Transmission Date: 20141002
  Serious: Yes (Other)
  Sender: FDA-Public Use
  Company Number: None

PATIENT
  Age: 73 Year
  Sex: Male
  Weight: 124 kg

DRUGS (1)
  1. PNEUMOCOCCAL VACCINE [Suspect]
     Indication: IMMUNISATION
     Route: 030
     Dates: start: 20130510, end: 20130511

REACTIONS (7)
  - Local swelling [None]
  - Neck pain [None]
  - Pruritus [None]
  - Rash [None]
  - Urticaria [None]
  - Pruritus [None]
  - Dyspnoea [None]
